FAERS Safety Report 6783982-2 (Version None)
Quarter: 2010Q2

REPORT INFORMATION
  Report Type: 
  Country: None (occurrence: None)
  Receive Date: 20100622
  Receipt Date: 20100308
  Transmission Date: 20101027
  Serious: No
  Sender: FDA-Public Use
  Company Number: US-BRISTOL-MYERS SQUIBB COMPANY-15009756

PATIENT
  Sex: Male

DRUGS (1)
  1. SINEMET [Suspect]

REACTIONS (1)
  - THERAPEUTIC RESPONSE UNEXPECTED [None]
